FAERS Safety Report 25547418 (Version 2)
Quarter: 2025Q3

REPORT INFORMATION
  Report Type: Report from Study
  Country: US (occurrence: US)
  Receive Date: 20250714
  Receipt Date: 20250820
  Transmission Date: 20251020
  Serious: Yes (Other)
  Sender: ALEXION PHARMACEUTICALS
  Company Number: US-AstraZeneca-CH-00906296A

PATIENT
  Age: 81 Year
  Sex: Female

DRUGS (1)
  1. ACALABRUTINIB [Suspect]
     Active Substance: ACALABRUTINIB
     Indication: Chronic lymphocytic leukaemia
     Dosage: 100 MILLIGRAM, Q12H
     Dates: start: 20240808

REACTIONS (9)
  - Nephrolithiasis [Unknown]
  - Retinal disorder [Unknown]
  - Eye swelling [Unknown]
  - Fatigue [Unknown]
  - Panic disorder [Unknown]
  - Stress [Unknown]
  - Anxiety [Unknown]
  - Mobility decreased [Unknown]
  - Pain [Unknown]
